FAERS Safety Report 19573683 (Version 2)
Quarter: 2021Q3

REPORT INFORMATION
  Report Type: Report from Study
  Country: DE (occurrence: DE)
  Receive Date: 20210717
  Receipt Date: 20210816
  Transmission Date: 20211014
  Serious: Yes (Other)
  Sender: FDA-Public Use
  Company Number: DE-SHIRE-DE201850628

PATIENT

DRUGS (23)
  1. TEDUGLUTIDE [Suspect]
     Active Substance: TEDUGLUTIDE
     Indication: SHORT-BOWEL SYNDROME
     Dosage: 4.3 MILLIGRAM (DAILY DOSE OF 0.0500)
     Route: 065
     Dates: start: 20150630, end: 20170703
  2. TEDUGLUTIDE [Suspect]
     Active Substance: TEDUGLUTIDE
     Indication: SHORT-BOWEL SYNDROME
     Dosage: 4.3 MILLIGRAM (DAILY DOSE OF 0.0500)
     Route: 065
     Dates: start: 20150630, end: 20170703
  3. TEDUGLUTIDE [Suspect]
     Active Substance: TEDUGLUTIDE
     Indication: SHORT-BOWEL SYNDROME
     Dosage: 4.3 MILLIGRAM (DAILY DOSE OF 0.0500)
     Route: 065
     Dates: start: 20150630, end: 20170703
  4. TEDUGLUTIDE [Suspect]
     Active Substance: TEDUGLUTIDE
     Dosage: 4.3 MILLIGRAM (DAILY DOSE OF 0.0500)
     Route: 065
     Dates: start: 201710, end: 201810
  5. KALINOR RETARD P [Concomitant]
     Active Substance: POTASSIUM CHLORIDE
     Indication: PRODUCT USED FOR UNKNOWN INDICATION
  6. ELIQUIS [Concomitant]
     Active Substance: APIXABAN
     Indication: PRODUCT USED FOR UNKNOWN INDICATION
  7. TEDUGLUTIDE [Suspect]
     Active Substance: TEDUGLUTIDE
     Dosage: 4 MILLIGRAM (DAILY DOSE OF 0.0500)
     Route: 065
     Dates: start: 201810
  8. TEDUGLUTIDE [Suspect]
     Active Substance: TEDUGLUTIDE
     Dosage: 4 MILLIGRAM (DAILY DOSE OF 0.0500)
     Route: 065
     Dates: start: 201810
  9. TEDUGLUTIDE [Suspect]
     Active Substance: TEDUGLUTIDE
     Indication: SHORT-BOWEL SYNDROME
     Dosage: 4.3 MILLIGRAM (DAILY DOSE OF 0.0500)
     Route: 065
     Dates: start: 20150630, end: 20170703
  10. VIGANTOLETTEN [Concomitant]
     Active Substance: CHOLECALCIFEROL
     Indication: VITAMIN SUPPLEMENTATION
  11. FALITHROM [Concomitant]
     Active Substance: PHENPROCOUMON
     Indication: PRODUCT USED FOR UNKNOWN INDICATION
  12. CLINDAMYCIN. [Concomitant]
     Active Substance: CLINDAMYCIN
     Indication: ABSCESS
  13. TEDUGLUTIDE [Suspect]
     Active Substance: TEDUGLUTIDE
     Dosage: 4.3 MILLIGRAM (DAILY DOSE OF 0.0500)
     Route: 065
     Dates: start: 201710, end: 201810
  14. TEDUGLUTIDE [Suspect]
     Active Substance: TEDUGLUTIDE
     Dosage: 4 MILLIGRAM (DAILY DOSE OF 0.0500)
     Route: 065
     Dates: start: 201810
  15. L THYROXIN [Concomitant]
     Active Substance: LEVOTHYROXINE SODIUM
     Indication: PRODUCT USED FOR UNKNOWN INDICATION
  16. PANTOPRAZOLE [Concomitant]
     Active Substance: PANTOPRAZOLE
     Indication: ANTACID THERAPY
  17. SINUPRET FORTE [Concomitant]
     Active Substance: DIETARY SUPPLEMENT\HERBALS
     Indication: NASOPHARYNGITIS
  18. TEDUGLUTIDE [Suspect]
     Active Substance: TEDUGLUTIDE
     Dosage: 4.3 MILLIGRAM (DAILY DOSE OF 0.0500)
     Route: 065
     Dates: start: 201710, end: 201810
  19. TEDUGLUTIDE [Suspect]
     Active Substance: TEDUGLUTIDE
     Dosage: 4.3 MILLIGRAM (DAILY DOSE OF 0.0500)
     Route: 065
     Dates: start: 201710, end: 201810
  20. VITAMINS NOS [Concomitant]
     Active Substance: VITAMINS
     Indication: VITAMIN SUPPLEMENTATION
  21. PARACETAMOL [Concomitant]
     Active Substance: ACETAMINOPHEN
     Indication: NASOPHARYNGITIS
  22. TEDUGLUTIDE [Suspect]
     Active Substance: TEDUGLUTIDE
     Dosage: 4 MILLIGRAM (DAILY DOSE OF 0.0500)
     Route: 065
     Dates: start: 201810
  23. RIFAMPICIN [Concomitant]
     Active Substance: RIFAMPIN
     Indication: ABSCESS

REACTIONS (7)
  - Vaginal abscess [Recovered/Resolved]
  - Dry mouth [Recovered/Resolved]
  - Nausea [Recovered/Resolved]
  - Thirst [Recovered/Resolved]
  - Breast abscess [Recovered/Resolved]
  - Dyspepsia [Recovered/Resolved]
  - Chest wall abscess [Recovered/Resolved]

NARRATIVE: CASE EVENT DATE: 201709
